FAERS Safety Report 16223960 (Version 1)
Quarter: 2019Q2

REPORT INFORMATION
  Report Type: Other
  Country: US (occurrence: US)
  Receive Date: 20190422
  Receipt Date: 20190422
  Transmission Date: 20190711
  Serious: Yes (Other)
  Sender: FDA-Public Use
  Company Number: US-LEADING PHARMA, LLC-2066101

PATIENT
  Age: 81 Year
  Sex: Male
  Weight: 77.7 kg

DRUGS (1)
  1. FUROSEMIDE. [Suspect]
     Active Substance: FUROSEMIDE

REACTIONS (2)
  - Antinuclear antibody positive [Unknown]
  - Histone antibody positive [Unknown]
